FAERS Safety Report 5781561-7 (Version None)
Quarter: 2008Q2

REPORT INFORMATION
  Report Type: 
  Country: None (occurrence: None)
  Receive Date: 20080623
  Receipt Date: 20080613
  Transmission Date: 20081010
  Serious: Yes (Hospitalization)
  Sender: FDA-Public Use
  Company Number: US-JNJFOC-20080603225

PATIENT
  Sex: Male

DRUGS (2)
  1. PREZISTA [Suspect]
     Indication: HIV INFECTION
  2. INTELENCE [Concomitant]
     Indication: HIV INFECTION

REACTIONS (2)
  - ENCEPHALOPATHY [None]
  - HEPATITIS B [None]
